FAERS Safety Report 4604955-1 (Version None)
Quarter: 2005Q1

REPORT INFORMATION
  Report Type: 
  Country: None (occurrence: None)
  Receive Date: 20050208
  Receipt Date: 20050208
  Transmission Date: 20050727
  Serious: Yes (Hospitalization)
  Sender: FDA-Public Use
  Company Number: None

PATIENT
  Age: 65 Year
  Sex: Male

DRUGS (19)
  1. DOXORUBICIN HCL [Suspect]
     Indication: PROSTATE CANCER
     Dosage: 10MG/M2  IV Q WK   X 3 Q 4 WEEKS
     Route: 042
     Dates: start: 20041214
  2. DOXORUBICIN HCL [Suspect]
     Indication: PROSTATE CANCER
     Dosage: 10MG/M2  IV Q WK   X 3 Q 4 WEEKS
     Route: 042
     Dates: start: 20041221
  3. DOXORUBICIN HCL [Suspect]
     Indication: PROSTATE CANCER
     Dosage: 10MG/M2  IV Q WK   X 3 Q 4 WEEKS
     Route: 042
     Dates: start: 20041228
  4. DOXORUBICIN HCL [Suspect]
     Indication: PROSTATE CANCER
     Dosage: 10MG/M2  IV Q WK   X 3 Q 4 WEEKS
     Route: 042
     Dates: start: 20050111
  5. DOXORUBICIN HCL [Suspect]
     Indication: PROSTATE CANCER
     Dosage: 10MG/M2  IV Q WK   X 3 Q 4 WEEKS
     Route: 042
     Dates: start: 20050118
  6. TAXOTERE [Suspect]
     Indication: PROSTATE CANCER
     Dosage: 35 MG/M2  IV Q WK  X 3 Q 4 WEEKS
     Route: 042
     Dates: start: 20041214
  7. TAXOTERE [Suspect]
     Indication: PROSTATE CANCER
     Dosage: 35 MG/M2  IV Q WK  X 3 Q 4 WEEKS
     Route: 042
     Dates: start: 20041221
  8. TAXOTERE [Suspect]
     Indication: PROSTATE CANCER
     Dosage: 35 MG/M2  IV Q WK  X 3 Q 4 WEEKS
     Route: 042
     Dates: start: 20041228
  9. TAXOTERE [Suspect]
     Indication: PROSTATE CANCER
     Dosage: 35 MG/M2  IV Q WK  X 3 Q 4 WEEKS
     Route: 042
     Dates: start: 20050111
  10. TAXOTERE [Suspect]
     Indication: PROSTATE CANCER
     Dosage: 35 MG/M2  IV Q WK  X 3 Q 4 WEEKS
     Route: 042
     Dates: start: 20050118
  11. CALCIUM CARB [Concomitant]
  12. LOPERAMIDE HCL [Concomitant]
  13. FLOMAX [Concomitant]
  14. ENALAPRIL [Concomitant]
  15. METOPROLOL TARTRATE [Concomitant]
  16. COMPAZINE [Concomitant]
  17. ZOLADEX [Concomitant]
  18. RANITIDINE [Concomitant]
  19. OMEPRAZOLE [Concomitant]

REACTIONS (3)
  - BLISTER [None]
  - OEDEMA PERIPHERAL [None]
  - RENAL FAILURE [None]
